FAERS Safety Report 4854256-1 (Version None)
Quarter: 2005Q4

REPORT INFORMATION
  Report Type: 
  Country: None (occurrence: None)
  Receive Date: 20051215
  Receipt Date: 20051205
  Transmission Date: 20060501
  Serious: Yes (Other)
  Sender: FDA-Public Use
  Company Number: CA-JNJFOC-20051201392

PATIENT
  Sex: Female
  Weight: 98.88 kg

DRUGS (2)
  1. REMICADE [Suspect]
     Dosage: PATIENT HAS RECEIVED A TOTAL OF 4 DOSES.
     Route: 042
  2. REMICADE [Suspect]
     Indication: RHEUMATOID ARTHRITIS
     Route: 042

REACTIONS (2)
  - HYPOAESTHESIA [None]
  - PARAESTHESIA [None]
